FAERS Safety Report 10485352 (Version 1)
Quarter: 2014Q3

REPORT INFORMATION
  Report Type: Report from Study
  Country: US (occurrence: US)
  Receive Date: 20140930
  Receipt Date: 20140930
  Transmission Date: 20150326
  Serious: No
  Sender: FDA-Public Use
  Company Number: US-ALEXION-A200700334

PATIENT
  Age: 26 Year
  Sex: Male

DRUGS (2)
  1. VIAGRA [Concomitant]
     Active Substance: SILDENAFIL CITRATE
     Indication: ERECTILE DYSFUNCTION
     Dosage: UNK
     Dates: start: 2007
  2. SOLIRIS [Suspect]
     Active Substance: ECULIZUMAB
     Indication: PAROXYSMAL NOCTURNAL HAEMOGLOBINURIA
     Dosage: UNK
     Route: 042
     Dates: start: 200704

REACTIONS (19)
  - Erectile dysfunction [Not Recovered/Not Resolved]
  - Activities of daily living impaired [Not Recovered/Not Resolved]
  - Partner stress [Not Recovered/Not Resolved]
  - Asthenia [Not Recovered/Not Resolved]
  - Agitation [Not Recovered/Not Resolved]
  - Pain in extremity [Not Recovered/Not Resolved]
  - Headache [Not Recovered/Not Resolved]
  - Haemoglobin decreased [Not Recovered/Not Resolved]
  - Back pain [Not Recovered/Not Resolved]
  - Chromaturia [Not Recovered/Not Resolved]
  - Drug ineffective [Not Recovered/Not Resolved]
  - Mood altered [Not Recovered/Not Resolved]
  - Depression [Not Recovered/Not Resolved]
  - Dizziness [Not Recovered/Not Resolved]
  - Blood urine present [Not Recovered/Not Resolved]
  - Dysphagia [Not Recovered/Not Resolved]
  - Epistaxis [Not Recovered/Not Resolved]
  - Somnolence [Not Recovered/Not Resolved]
  - Malaise [Not Recovered/Not Resolved]

NARRATIVE: CASE EVENT DATE: 2007
